FAERS Safety Report 18522122 (Version 1)
Quarter: 2020Q4

REPORT INFORMATION
  Report Type: Spontaneous
  Country: US (occurrence: US)
  Receive Date: 20201119
  Receipt Date: 20201119
  Transmission Date: 20210114
  Serious: Yes (Hospitalization)
  Sender: FDA-Public Use
  Company Number: None

PATIENT
  Sex: Male

DRUGS (1)
  1. PEMAZYRE [Suspect]
     Active Substance: PEMIGATINIB
     Indication: CHOLANGIOCARCINOMA
     Route: 048

REACTIONS (7)
  - Neuropathy peripheral [None]
  - Abdominal distension [None]
  - Intra-abdominal fluid collection [None]
  - Haemoglobin decreased [None]
  - Asthenia [None]
  - Red blood cell count decreased [None]
  - Pericardial effusion [None]
